FAERS Safety Report 8198583-1 (Version None)
Quarter: 2012Q1

REPORT INFORMATION
  Report Type: 
  Country: None (occurrence: None)
  Receive Date: 20120309
  Receipt Date: 20120105
  Transmission Date: 20120608
  Serious: No
  Sender: FDA-Public Use
  Company Number: US-AMGEN-USASP2012000596

PATIENT
  Age: 71 Year
  Sex: Female

DRUGS (7)
  1. VITAMIN D [Concomitant]
     Dosage: UNK
  2. LOTENSIN HCT [Concomitant]
     Dosage: UNK
  3. CALCIUM [Concomitant]
     Dosage: UNK
  4. PROLIA [Suspect]
     Indication: OSTEOPOROSIS POSTMENOPAUSAL
     Dosage: UNK UNK, Q6MO
     Dates: start: 20110907
  5. PRAVASTATIN [Concomitant]
     Dosage: UNK
  6. AMITRIPTYLINE HCL [Concomitant]
     Indication: INSOMNIA
     Dosage: UNK
  7. TYLENOL [Concomitant]
     Dosage: UNK UNK, PRN

REACTIONS (3)
  - DERMATITIS BULLOUS [None]
  - MACULE [None]
  - SKIN IRRITATION [None]
